FAERS Safety Report 13739966 (Version 1)
Quarter: 2017Q3

REPORT INFORMATION
  Report Type: Spontaneous
  Country: FR (occurrence: FR)
  Receive Date: 20170711
  Receipt Date: 20170711
  Transmission Date: 20171127
  Serious: Yes (Other)
  Sender: FDA-Public Use
  Company Number: FR-ELI_LILLY_AND_COMPANY-FR201707001192

PATIENT
  Sex: Male

DRUGS (1)
  1. UMULINE [Suspect]
     Active Substance: INSULIN HUMAN
     Indication: TYPE 2 DIABETES MELLITUS
     Dosage: 30 IU, DAILY
     Route: 065
     Dates: start: 201403, end: 201704

REACTIONS (2)
  - Gait disturbance [Unknown]
  - Neurodegenerative disorder [Recovering/Resolving]

NARRATIVE: CASE EVENT DATE: 2014
